FAERS Safety Report 26053579 (Version 1)
Quarter: 2025Q4

REPORT INFORMATION
  Report Type: Spontaneous
  Country: US (occurrence: None)
  Receive Date: 20251117
  Receipt Date: 20251117
  Transmission Date: 20260117
  Serious: Yes (Death)
  Sender: FDA-CTU
  Company Number: None

PATIENT
  Age: 73 Year
  Sex: Female
  Weight: 54 kg

DRUGS (4)
  1. FENTANYL TRANSDERMAL SYSTEM [Suspect]
     Active Substance: FENTANYL
     Dosage: OTHER FREQUENCY : 2ND PATCH IN 72 HR;?
     Route: 062
     Dates: start: 20250316, end: 20250320
  2. HYDROCODONE [Suspect]
     Active Substance: HYDROCODONE
  3. MORPHINE [Suspect]
     Active Substance: MORPHINE
  4. Albuterol using a machine and face mask Morphine oral liquid [Concomitant]

REACTIONS (1)
  - Eye movement disorder [None]

NARRATIVE: CASE EVENT DATE: 20250318
